FAERS Safety Report 5040252-0 (Version None)
Quarter: 2006Q2

REPORT INFORMATION
  Report Type: 
  Country: None (occurrence: None)
  Receive Date: 20060630
  Receipt Date: 20060104
  Transmission Date: 20061013
  Serious: Yes (Death, Life-Threatening, Disabling, Other)
  Sender: FDA-Public Use
  Company Number: AU-ABBOTT-06P-008-0321126-00

PATIENT
  Sex: Male
  Weight: 62.6 kg

DRUGS (7)
  1. RITONAVIR SOFT GELATIN CAPSULES [Suspect]
     Indication: HIV INFECTION
     Route: 048
     Dates: start: 20051124, end: 20060506
  2. TMC114 [Concomitant]
     Indication: HIV INFECTION
     Route: 048
     Dates: start: 20051124, end: 20060506
  3. LAMIVUDINE [Concomitant]
     Indication: HIV INFECTION
     Dates: start: 20051124, end: 20060506
  4. VIREAD [Concomitant]
     Indication: HIV INFECTION
     Route: 048
     Dates: start: 20051124, end: 20060506
  5. BACTRIM [Concomitant]
     Indication: ANTIBIOTIC PROPHYLAXIS
     Route: 048
     Dates: end: 20060506
  6. SILDENAFIL CITRATE [Concomitant]
     Indication: ERECTILE DYSFUNCTION
     Route: 048
     Dates: end: 20060506
  7. MOMETASONE FUROATE [Concomitant]
     Indication: RASH
     Route: 061
     Dates: end: 20060506

REACTIONS (3)
  - IMMUNE RECONSTITUTION SYNDROME [None]
  - KAPOSI'S SARCOMA [None]
  - RESPIRATORY FAILURE [None]
